FAERS Safety Report 19972838 (Version 1)
Quarter: 2021Q4

REPORT INFORMATION
  Report Type: Spontaneous
  Country: US (occurrence: US)
  Receive Date: 20211019
  Receipt Date: 20211019
  Transmission Date: 20220303
  Serious: Yes (Hospitalization)
  Sender: FDA-Public Use
  Company Number: None

PATIENT
  Age: 65 Year
  Sex: Male
  Weight: 105.2 kg

DRUGS (1)
  1. BREXUCABTAGENE AUTOLEUCEL [Suspect]
     Active Substance: BREXUCABTAGENE AUTOLEUCEL
     Indication: Mantle cell lymphoma
     Dosage: ?          OTHER FREQUENCY:ONCE;
     Route: 042
     Dates: start: 20210907, end: 20210907

REACTIONS (10)
  - Malignant pleural effusion [None]
  - Haemothorax [None]
  - Confusional state [None]
  - Mental impairment [None]
  - Acute kidney injury [None]
  - Renal failure [None]
  - Hyperbilirubinaemia [None]
  - Haemoperitoneum [None]
  - Splenic rupture [None]
  - Multiple organ dysfunction syndrome [None]

NARRATIVE: CASE EVENT DATE: 20210907
